FAERS Safety Report 7750790-5 (Version None)
Quarter: 2011Q3

REPORT INFORMATION
  Report Type: 
  Country: None (occurrence: None)
  Receive Date: 20110914
  Receipt Date: 20110831
  Transmission Date: 20111222
  Serious: Yes (Hospitalization, Other)
  Sender: FDA-Public Use
  Company Number: JP-CEPHALON-2011004803

PATIENT
  Sex: Male
  Weight: 70 kg

DRUGS (6)
  1. RAMATROBAN [Concomitant]
     Dates: start: 20110117, end: 20110227
  2. TREANDA [Suspect]
     Indication: B-CELL LYMPHOMA
     Route: 042
     Dates: start: 20110113
  3. FLUTICASONE PROPIONATE [Concomitant]
     Dates: start: 20110117, end: 20110227
  4. EBASTINE [Concomitant]
     Dates: start: 20110117, end: 20110227
  5. DEFERASIROX [Concomitant]
  6. FILGRASTIM [Concomitant]
     Dates: start: 20110122, end: 20110218

REACTIONS (2)
  - LIVER DISORDER [None]
  - LYMPHOCYTE COUNT DECREASED [None]
